FAERS Safety Report 23964751 (Version 1)
Quarter: 2024Q2

REPORT INFORMATION
  Report Type: Spontaneous
  Country: US (occurrence: US)
  Receive Date: 20240612
  Receipt Date: 20240612
  Transmission Date: 20240716
  Serious: Yes (Other)
  Sender: FDA-Public Use
  Company Number: US-OPELLA-2024OHG020105

PATIENT
  Sex: Male

DRUGS (1)
  1. DULCOLAX STIMULANT LAXATIVE [Suspect]
     Active Substance: BISACODYL
     Indication: Constipation

REACTIONS (1)
  - Rectal haemorrhage [Unknown]
